FAERS Safety Report 6051008-4 (Version None)
Quarter: 2009Q1

REPORT INFORMATION
  Report Type: 
  Country: None (occurrence: None)
  Receive Date: 20090126
  Receipt Date: 20081126
  Transmission Date: 20090719
  Serious: Yes (Other)
  Sender: FDA-Public Use
  Company Number: US-TYCO HEALTHCARE/MALLINCKRODT-T200801894

PATIENT

DRUGS (3)
  1. OPTIRAY 300 [Suspect]
     Indication: COMPUTERISED TOMOGRAM THORAX
     Dosage: 90 ML, SINGLE
     Route: 042
     Dates: start: 20081031, end: 20081031
  2. VICODIN [Concomitant]
     Indication: DRUG USE FOR UNKNOWN INDICATION
     Dosage: 1 TAB Q 4-6 HR, PRN
     Route: 048
  3. DOXYCYCLINE HYCLATE [Concomitant]
     Indication: DRUG USE FOR UNKNOWN INDICATION
     Dosage: 100 MG, BID
     Route: 048

REACTIONS (2)
  - DYSPNOEA [None]
  - PHARYNGEAL OEDEMA [None]
